FAERS Safety Report 25768475 (Version 1)
Quarter: 2025Q3

REPORT INFORMATION
  Report Type: Spontaneous
  Country: US (occurrence: US)
  Receive Date: 20250905
  Receipt Date: 20250905
  Transmission Date: 20251020
  Serious: No
  Sender: PFIZER
  Company Number: US-PFIZER INC-PV202500107274

PATIENT
  Age: 54 Year
  Sex: Female

DRUGS (1)
  1. RUXIENCE [Suspect]
     Active Substance: RITUXIMAB-PVVR
     Dates: start: 202312

REACTIONS (5)
  - Drug ineffective [Recovered/Resolved]
  - Condition aggravated [Recovered/Resolved]
  - Inflammation [Recovered/Resolved]
  - Pain in extremity [Recovered/Resolved]
  - Mobility decreased [Recovered/Resolved]
